FAERS Safety Report 8494177-9 (Version None)
Quarter: 2012Q3

REPORT INFORMATION
  Report Type: 
  Country: None (occurrence: None)
  Receive Date: 20120709
  Receipt Date: 20120703
  Transmission Date: 20120928
  Serious: Yes (Death, Other)
  Sender: FDA-Public Use
  Company Number: PHEH2012US013157

PATIENT
  Sex: Female

DRUGS (1)
  1. RECLAST [Suspect]
     Dosage: 5 MG, YEARLY
     Route: 042
     Dates: start: 20111001

REACTIONS (4)
  - DEATH [None]
  - CARDIAC FAILURE CONGESTIVE [None]
  - AORTIC STENOSIS [None]
  - RENAL FAILURE [None]
